FAERS Safety Report 5646249-1 (Version None)
Quarter: 2008Q1

REPORT INFORMATION
  Report Type: 
  Country: None (occurrence: None)
  Receive Date: 20080131
  Receipt Date: 20071206
  Transmission Date: 20080703
  Serious: No
  Sender: FDA-Public Use
  Company Number: 163-21880-07120553

PATIENT
  Age: 83 Year
  Sex: Female

DRUGS (1)
  1. REVLIMID [Suspect]
     Indication: MULTIPLE MYELOMA
     Dosage: 5 MG, QD X 21 D, ORAL
     Route: 048
     Dates: start: 20071113

REACTIONS (3)
  - ARTHRITIS [None]
  - FATIGUE [None]
  - MUSCULOSKELETAL STIFFNESS [None]
